FAERS Safety Report 21526122 (Version 1)
Quarter: 2022Q4

REPORT INFORMATION
  Report Type: Other
  Country: IT (occurrence: IT)
  Receive Date: 20221031
  Receipt Date: 20221031
  Transmission Date: 20230113
  Serious: Yes (Life-Threatening, Hospitalization, Other)
  Sender: FDA-Public Use
  Company Number: IT-CELLTRION INC.-2022IT017750

PATIENT

DRUGS (1)
  1. TRASTUZUMAB [Suspect]
     Active Substance: TRASTUZUMAB
     Indication: Breast cancer
     Dosage: IN DATA 02/09/22 DOSE 8 MG/KG (DOSE TOTALE 560 MG)IN DATA 22/09/22 DOSE 6 MG/KG (DOSE TOTALE 390 MG)
     Route: 042
     Dates: start: 20220902, end: 20220922

REACTIONS (2)
  - Cardiac arrest [Recovered/Resolved]
  - Overdose [Unknown]

NARRATIVE: CASE EVENT DATE: 20220922
